FAERS Safety Report 5096210-3 (Version None)
Quarter: 2006Q3

REPORT INFORMATION
  Report Type: 
  Country: None (occurrence: None)
  Receive Date: 20060831
  Receipt Date: 20060816
  Transmission Date: 20061208
  Serious: Yes (Hospitalization)
  Sender: FDA-Public Use
  Company Number: 2006S1003153

PATIENT
  Age: 63 Year
  Sex: Female

DRUGS (5)
  1. VINFLUNINE (280 MG/M**2) [Suspect]
     Indication: NEOPLASM MALIGNANT
     Dosage: 280 MG/M**2; INTRA
     Dates: start: 20060323, end: 20060323
  2. KETOCONAZOLE [Suspect]
     Indication: NEOPLASM MALIGNANT
     Dosage: 400 MG; ORAL
     Route: 048
     Dates: start: 20060322, end: 20060328
  3. CELECOXIB [Concomitant]
  4. HYDROCHLOROTHIAZIDE W/ TRIAMTERENE [Concomitant]
  5. CETIRIZINE HCL [Concomitant]

REACTIONS (6)
  - DEHYDRATION [None]
  - FEBRILE NEUTROPENIA [None]
  - ORAL INTAKE REDUCED [None]
  - PLATELET COUNT DECREASED [None]
  - STOMATITIS [None]
  - WHITE BLOOD CELL COUNT DECREASED [None]
